FAERS Safety Report 15026963 (Version 2)
Quarter: 2018Q2

REPORT INFORMATION
  Report Type: Spontaneous
  Country: PL (occurrence: PL)
  Receive Date: 20180619
  Receipt Date: 20180625
  Transmission Date: 20180711
  Serious: Yes (Death)
  Sender: FDA-Public Use
  Company Number: PL-ROCHE-2141834

PATIENT
  Sex: Male
  Weight: 70 kg

DRUGS (1)
  1. ERIVEDGE [Suspect]
     Active Substance: VISMODEGIB
     Indication: BASAL CELL CARCINOMA
     Route: 048
     Dates: start: 20150219, end: 20180517

REACTIONS (2)
  - Electrolyte imbalance [Fatal]
  - Gastrointestinal infection [Fatal]
